FAERS Safety Report 15930157 (Version 3)
Quarter: 2019Q1

REPORT INFORMATION
  Report Type: Spontaneous
  Country: IT (occurrence: IT)
  Receive Date: 20190206
  Receipt Date: 20190311
  Transmission Date: 20190417
  Serious: Yes (Other)
  Sender: FDA-Public Use
  Company Number: IT-AUROBINDO-AUR-APL-2019-003464

PATIENT

DRUGS (2)
  1. LEVOFLOXACIN FILMCOATED TABLET [Suspect]
     Active Substance: LEVOFLOXACIN
     Indication: PNEUMONITIS
     Dosage: 750 MILLIGRAM, IN TOTAL
     Route: 048
     Dates: start: 20180417, end: 20180417
  2. PLASIL [Suspect]
     Active Substance: METOCLOPRAMIDE HYDROCHLORIDE
     Indication: NAUSEA
     Dosage: 1 DOSAGE FORM, IN TOTAL
     Route: 042
     Dates: start: 20180417, end: 20180417

REACTIONS (1)
  - Enanthema [Recovering/Resolving]

NARRATIVE: CASE EVENT DATE: 20180417
